FAERS Safety Report 6184248-4 (Version None)
Quarter: 2009Q2

REPORT INFORMATION
  Report Type: 
  Country: None (occurrence: None)
  Receive Date: 20090506
  Receipt Date: 20090506
  Transmission Date: 20091009
  Serious: No
  Sender: FDA-Public Use
  Company Number: None

PATIENT
  Sex: Female
  Weight: 142.8831 kg

DRUGS (12)
  1. AVONEX [Suspect]
     Indication: MULTIPLE SCLEROSIS
     Dosage: 30MCG ONCE WEEKLY IM
     Route: 030
     Dates: start: 20090307
  2. AVONEX [Suspect]
     Indication: MULTIPLE SCLEROSIS
     Dosage: 30MCG ONCE WEEKLY IM
     Route: 030
     Dates: start: 20090314
  3. AVONEX [Suspect]
     Indication: MULTIPLE SCLEROSIS
     Dosage: 30MCG ONCE WEEKLY IM
     Route: 030
     Dates: start: 20090321
  4. AVALIDE [Concomitant]
  5. CELEBREX [Concomitant]
  6. FLEXERIL [Concomitant]
  7. ZOLPIDEM [Concomitant]
  8. ASCORBIC ACID [Concomitant]
  9. VITAMIN E [Concomitant]
  10. VITAMIN B COMPLEX CAP [Concomitant]
  11. CALCIUM [Concomitant]
  12. HYDROCODONE/ACETAMINIPHEN [Concomitant]

REACTIONS (6)
  - CHILLS [None]
  - CONFUSIONAL STATE [None]
  - PAIN IN EXTREMITY [None]
  - PRODUCT SUBSTITUTION ISSUE [None]
  - PYREXIA [None]
  - SENSORY DISTURBANCE [None]
